FAERS Safety Report 15840250 (Version 1)
Quarter: 2019Q1

REPORT INFORMATION
  Report Type: Report from Study
  Country: None (occurrence: US)
  Receive Date: 20190117
  Receipt Date: 20190117
  Transmission Date: 20190417
  Serious: Yes (Hospitalization, Other)
  Sender: FDA-Public Use
  Company Number: US-ABBVIE-18K-163-2594514-00

PATIENT
  Sex: Female

DRUGS (2)
  1. HUMIRA [Suspect]
     Active Substance: ADALIMUMAB
     Dosage: DAY 15
     Route: 058
     Dates: start: 20181102, end: 20181102
  2. HUMIRA [Suspect]
     Active Substance: ADALIMUMAB
     Indication: CROHN^S DISEASE
     Route: 058
     Dates: start: 20181019, end: 20181019

REACTIONS (7)
  - Diarrhoea [Unknown]
  - Abscess intestinal [Recovered/Resolved]
  - Drug ineffective [Unknown]
  - Intestinal obstruction [Unknown]
  - Insomnia [Unknown]
  - Fear [Unknown]
  - Anxiety [Unknown]

NARRATIVE: CASE EVENT DATE: 2018
